FAERS Safety Report 8373176-1 (Version None)
Quarter: 2012Q2

REPORT INFORMATION
  Report Type: 
  Country: None (occurrence: None)
  Receive Date: 20120521
  Receipt Date: 20120510
  Transmission Date: 20120825
  Serious: Yes (Hospitalization)
  Sender: FDA-Public Use
  Company Number: US-GENZYME-POMP-1002213

PATIENT
  Age: 41 Year
  Sex: Female

DRUGS (3)
  1. BENADRYL [Concomitant]
     Indication: PREMEDICATION
     Dosage: UNK
     Route: 065
  2. TYLENOL [Concomitant]
     Indication: PREMEDICATION
     Dosage: UNK
     Route: 065
  3. LUMIZYME [Suspect]
     Indication: GLYCOGEN STORAGE DISEASE TYPE II
     Dosage: UNK
     Route: 042
     Dates: start: 20111121

REACTIONS (4)
  - PSYCHOTIC BEHAVIOUR [None]
  - AGITATION [None]
  - HALLUCINATION [None]
  - DELUSION [None]
